FAERS Safety Report 17428511 (Version 1)
Quarter: 2020Q1

REPORT INFORMATION
  Report Type: Spontaneous
  Country: RU (occurrence: RU)
  Receive Date: 20200217
  Receipt Date: 20200217
  Transmission Date: 20200409
  Serious: Yes (Hospitalization)
  Sender: FDA-Public Use
  Company Number: NVSC2020RU043926

PATIENT
  Age: 60 Year
  Sex: Female

DRUGS (1)
  1. METHOTREXATE EBEWE [Suspect]
     Active Substance: METHOTREXATE
     Indication: PRODUCT USED FOR UNKNOWN INDICATION
     Dosage: UNK
     Route: 065

REACTIONS (4)
  - Nausea [Recovered/Resolved]
  - Body temperature increased [Recovered/Resolved]
  - Alopecia [Recovered/Resolved]
  - Oedema [Recovered/Resolved]
